FAERS Safety Report 5196525-4 (Version None)
Quarter: 2006Q4

REPORT INFORMATION
  Report Type: 
  Country: None (occurrence: None)
  Receive Date: 20061227
  Receipt Date: 20061207
  Transmission Date: 20070319
  Serious: Yes (Other)
  Sender: FDA-Public Use
  Company Number: 2006002347

PATIENT
  Age: 75 Year
  Sex: Female

DRUGS (1)
  1. MACUGEN [Suspect]
     Dosage: INTRA-VITREAL

REACTIONS (1)
  - MYOCARDIAL INFARCTION [None]
